FAERS Safety Report 18041424 (Version 3)
Quarter: 2020Q4

REPORT INFORMATION
  Report Type: Spontaneous
  Country: DE (occurrence: DE)
  Receive Date: 20200719
  Receipt Date: 20201218
  Transmission Date: 20210113
  Serious: Yes (Hospitalization, Other)
  Sender: FDA-Public Use
  Company Number: DE-AUROBINDO-AUR-APL-2020-034875

PATIENT
  Sex: Male
  Weight: 83 kg

DRUGS (31)
  1. VALSARTAN. [Suspect]
     Active Substance: VALSARTAN
     Dosage: 80 MILLIGRAM, FOUR TIMES/DAY (320 MILLIGRAM, ONCE A DAY)
     Route: 065
  2. CAPTOPRIL. [Suspect]
     Active Substance: CAPTOPRIL
     Indication: HYPERTENSION
     Dosage: 50 MILLIGRAM, TWO TIMES A DAY (100 MILLIGRAM, ONCE A DAY)
     Route: 065
     Dates: start: 201112
  3. PANTOZOL [Concomitant]
     Active Substance: PANTOPRAZOLE SODIUM
     Indication: ABDOMINAL DISCOMFORT
     Dosage: 20 MILLIGRAM, ONCE A DAY
     Route: 065
     Dates: start: 2014
  4. CANDESARTAN. [Concomitant]
     Active Substance: CANDESARTAN
     Dosage: 16 MILLIGRAM, TWO TIMES A DAY
     Route: 065
  5. CLOPIDOGREL [Concomitant]
     Active Substance: CLOPIDOGREL BISULFATE
     Indication: CORONARY ARTERY DISEASE
     Dosage: 75 MILLIGRAM, ONCE A DAY
     Route: 065
     Dates: start: 2015
  6. PANTOZOL [Concomitant]
     Active Substance: PANTOPRAZOLE SODIUM
     Dosage: 20 MILLIGRAM, ONCE A DAY
     Route: 065
  7. IBUPROFEN. [Concomitant]
     Active Substance: IBUPROFEN
     Indication: INTERVERTEBRAL DISC PROTRUSION
     Dosage: 600 MILLIGRAM
     Route: 065
     Dates: start: 2018, end: 2018
  8. NEBIVOLOL. [Concomitant]
     Active Substance: NEBIVOLOL
     Indication: PRODUCT USED FOR UNKNOWN INDICATION
     Dosage: UNK
     Route: 065
     Dates: end: 201112
  9. AMLODIPINE [Suspect]
     Active Substance: AMLODIPINE BESYLATE
     Indication: HYPERTENSION
     Dosage: 5 MILLIGRAM, TWO TIMES A DAY (10 MILLIGRAM,ONCE A DAY)
     Route: 065
  10. CLOPIDOGREL [Concomitant]
     Active Substance: CLOPIDOGREL BISULFATE
     Dosage: 75 MILLIGRAM, ONCE A DAY
     Route: 065
  11. HYDROCHLOROTHIAZIDE. [Concomitant]
     Active Substance: HYDROCHLOROTHIAZIDE
     Indication: PRODUCT USED FOR UNKNOWN INDICATION
     Dosage: UNK UNK, ONCE A DAY
     Route: 065
  12. VALSARTAN. [Suspect]
     Active Substance: VALSARTAN
     Indication: PRODUCT USED FOR UNKNOWN INDICATION
     Dosage: 80 MILLIGRAM, TWO TIMES A DAY (160 MILLIGRAM, ONCE A DAY)
     Route: 065
  13. MOXONIDINE [Suspect]
     Active Substance: MOXONIDINE
     Indication: PRODUCT USED FOR UNKNOWN INDICATION
     Dosage: UNK
     Route: 065
  14. PROPRANOLOL HYDROCHLORIDE. [Concomitant]
     Active Substance: PROPRANOLOL HYDROCHLORIDE
     Indication: PRODUCT USED FOR UNKNOWN INDICATION
     Dosage: UNK
     Route: 065
  15. ACERCOMP [Concomitant]
     Indication: HYPERTENSION
     Dosage: UNK UNK, ONCE A DAY
     Route: 065
     Dates: start: 1998
  16. IBUPROFEN. [Concomitant]
     Active Substance: IBUPROFEN
     Dosage: 600 MILLIGRAM
     Route: 065
  17. MUNOBAL [Concomitant]
     Active Substance: FELODIPINE
     Indication: HYPERTENSION
     Dosage: 5 MILLIGRAM, TWO TIMES A DAY (10 MILLIGRAM, ONCE A DAY)
     Route: 065
  18. HYDROCHLOORTHIAZIDE [Suspect]
     Active Substance: HYDROCHLOROTHIAZIDE
     Indication: PRODUCT USED FOR UNKNOWN INDICATION
     Dosage: UNK
     Route: 065
  19. VALSARTAN 1A PHARMA [Suspect]
     Active Substance: VALSARTAN
     Dosage: 0.5 DOSAGE FORM, TWO TIMES A DAY (1 DOSAGE FORM,ONCE A DAY)
     Route: 065
     Dates: start: 20140710, end: 20181217
  20. METOPROLOL. [Suspect]
     Active Substance: METOPROLOL
     Indication: ESSENTIAL TREMOR
     Dosage: UNK
     Route: 065
     Dates: start: 201203, end: 201203
  21. KERLONE [Concomitant]
     Active Substance: BETAXOLOL HYDROCHLORIDE
     Indication: PRODUCT USED FOR UNKNOWN INDICATION
     Dosage: 20 MILLIGRAM, ONCE A DAY
     Route: 065
  22. KERLONE [Concomitant]
     Active Substance: BETAXOLOL HYDROCHLORIDE
     Dosage: 10 MILLIGRAM, ONCE A DAY
     Route: 065
     Dates: end: 201112
  23. BISOPROLOL [Concomitant]
     Active Substance: BISOPROLOL
     Indication: HYPERTENSION
     Dosage: 5 MILLIGRAM, ONCE A DAY
     Route: 065
  24. BISOPROLOL [Concomitant]
     Active Substance: BISOPROLOL
     Dosage: 5 MILLIGRAM, TWO TIMES A DAY
     Route: 065
  25. VALSARTAN 1A PHARMA [Suspect]
     Active Substance: VALSARTAN
     Indication: HYPERTENSION
     Dosage: UNK UNK, ONCE A DAY
     Route: 065
     Dates: start: 2013, end: 2013
  26. VERAPAMIL [Suspect]
     Active Substance: VERAPAMIL HYDROCHLORIDE
     Indication: PRODUCT USED FOR UNKNOWN INDICATION
     Dosage: UNK
     Route: 065
  27. TOREM [Concomitant]
     Active Substance: TORSEMIDE
     Indication: HYPERTENSION
     Dosage: 5 MILLIGRAM, ONCE A DAY
     Route: 065
     Dates: start: 2018, end: 2018
  28. TORASEMID [Concomitant]
     Active Substance: TORSEMIDE
     Dosage: 5 MILLIGRAM, ONCE A DAY
     Route: 065
     Dates: start: 2014
  29. CANDESARTAN. [Concomitant]
     Active Substance: CANDESARTAN
     Indication: PRODUCT USED FOR UNKNOWN INDICATION
     Dosage: 16 MILLIGRAM, ONCE A DAY
     Route: 065
  30. PROPRANOLOL [Suspect]
     Active Substance: PROPRANOLOL HYDROCHLORIDE
     Indication: ESSENTIAL TREMOR
     Dosage: UNK
     Route: 065
     Dates: start: 201203, end: 201203
  31. TORASEMID [Concomitant]
     Active Substance: TORSEMIDE
     Indication: HYPERTENSION
     Dosage: UNK UNK, TWO TIMES A DAY
     Route: 065
     Dates: start: 1998, end: 2014

REACTIONS (60)
  - Sleep apnoea syndrome [Unknown]
  - Osteochondrosis [Unknown]
  - Hernia [Unknown]
  - Migraine with aura [Recovered/Resolved]
  - Skin erosion [Unknown]
  - Diverticulum [Unknown]
  - Haematoma [Unknown]
  - Breathing-related sleep disorder [Unknown]
  - Dizziness [Unknown]
  - Quality of life decreased [Unknown]
  - Peroneal nerve palsy [Unknown]
  - Neck pain [Unknown]
  - Nausea [Recovered/Resolved]
  - Inflammation [Unknown]
  - Neuralgia [Unknown]
  - Facet joint syndrome [Unknown]
  - Coronary artery disease [Unknown]
  - Bursitis [Unknown]
  - Arthralgia [Recovering/Resolving]
  - Oedema [Unknown]
  - Dry mouth [Unknown]
  - Abdominal discomfort [Unknown]
  - Factor VII deficiency [Unknown]
  - Abdominal pain [Unknown]
  - Head discomfort [Unknown]
  - Osteoarthritis [Unknown]
  - Headache [Unknown]
  - Nervous system disorder [Unknown]
  - Stasis dermatitis [Unknown]
  - Meniscus injury [Unknown]
  - Neurofibroma [Unknown]
  - Orthostatic intolerance [Recovered/Resolved]
  - Memory impairment [Recovering/Resolving]
  - Drug intolerance [Unknown]
  - Wound [Unknown]
  - Chest pain [Unknown]
  - Vertigo [Recovered/Resolved]
  - Pain in extremity [Recovering/Resolving]
  - Cognitive disorder [Recovered/Resolved]
  - Actinic keratosis [Unknown]
  - Neoplasm skin [Unknown]
  - Fatigue [Recovered/Resolved]
  - Leukopenia [Unknown]
  - Peripheral venous disease [Unknown]
  - Actinic keratosis [Recovered/Resolved]
  - Solar lentigo [Unknown]
  - Merycism [Unknown]
  - Gait disturbance [Unknown]
  - Spinal pain [Recovering/Resolving]
  - Dysphagia [Unknown]
  - Restless legs syndrome [Unknown]
  - Asthenia [Not Recovered/Not Resolved]
  - Dyspnoea [Unknown]
  - Oesophagitis [Unknown]
  - Mental disorder [Not Recovered/Not Resolved]
  - Melanocytic naevus [Unknown]
  - Helicobacter test positive [Unknown]
  - Hypertension [Not Recovered/Not Resolved]
  - Patellofemoral pain syndrome [Unknown]
  - Cervicobrachial syndrome [Unknown]

NARRATIVE: CASE EVENT DATE: 2011
